FAERS Safety Report 7990418-2 (Version None)
Quarter: 2011Q4

REPORT INFORMATION
  Report Type: 
  Country: None (occurrence: None)
  Receive Date: 20111219
  Receipt Date: 20101105
  Transmission Date: 20120403
  Serious: Yes (Hospitalization)
  Sender: FDA-Public Use
  Company Number: US-ASTRAZENECA-2010SE52784

PATIENT
  Age: 64 Year
  Sex: Male

DRUGS (3)
  1. CRESTOR [Suspect]
     Indication: BLOOD CHOLESTEROL INCREASED
     Route: 048
     Dates: start: 20090201, end: 20100101
  2. ZOCOR [Concomitant]
  3. CRESTOR [Suspect]
     Route: 048
     Dates: start: 20100101

REACTIONS (1)
  - RHABDOMYOLYSIS [None]
